FAERS Safety Report 14679643 (Version 2)
Quarter: 2018Q2

REPORT INFORMATION
  Report Type: Spontaneous
  Country: US (occurrence: US)
  Receive Date: 20180326
  Receipt Date: 20180613
  Transmission Date: 20180711
  Serious: No
  Sender: FDA-Public Use
  Company Number: US-ASTRAZENECA-2018SE37271

PATIENT
  Age: 27685 Day
  Sex: Female

DRUGS (1)
  1. BYDUREON [Suspect]
     Active Substance: EXENATIDE
     Route: 058

REACTIONS (3)
  - Drug dose omission [Unknown]
  - Product solubility abnormal [Unknown]
  - Cataract [Unknown]

NARRATIVE: CASE EVENT DATE: 20160103
